FAERS Safety Report 11788595 (Version 1)
Quarter: 2015Q4

REPORT INFORMATION
  Report Type: Spontaneous
  Country: US (occurrence: None)
  Receive Date: 20151130
  Receipt Date: 20151130
  Transmission Date: 20160305
  Serious: Yes (Disabling)
  Sender: FDA-Public Use
  Company Number: None

PATIENT
  Age: 55 Year
  Sex: Female
  Weight: 57.15 kg

DRUGS (7)
  1. FLONASE [Concomitant]
     Active Substance: FLUTICASONE PROPIONATE
  2. LEVOFLOXACIN 750 MG AUROBINDO PHARM [Suspect]
     Active Substance: LEVOFLOXACIN
     Indication: ESCHERICHIA URINARY TRACT INFECTION
     Dosage: 7 PILLS
     Route: 048
     Dates: start: 20151117, end: 20151123
  3. LOSARTAN. [Concomitant]
     Active Substance: LOSARTAN
  4. KRILL OIL [Concomitant]
     Active Substance: DIETARY SUPPLEMENT
  5. CLARITIN [Concomitant]
     Active Substance: LORATADINE
  6. TUMERIC [Concomitant]
     Active Substance: TURMERIC
  7. BLACK COHOSH [Concomitant]
     Active Substance: BLACK COHOSH

REACTIONS (7)
  - Back pain [None]
  - Condition aggravated [None]
  - Pain in extremity [None]
  - Myalgia [None]
  - Muscle tightness [None]
  - Arthralgia [None]
  - Neck pain [None]

NARRATIVE: CASE EVENT DATE: 20151111
